FAERS Safety Report 26203448 (Version 1)
Quarter: 2025Q4

REPORT INFORMATION
  Report Type: Spontaneous
  Country: US (occurrence: None)
  Receive Date: 20251223
  Receipt Date: 20251223
  Transmission Date: 20260118
  Serious: Yes (Life-Threatening, Hospitalization)
  Sender: FDA-CTU
  Company Number: None

PATIENT
  Age: 55 Year
  Sex: Female
  Weight: 80.55 kg

DRUGS (6)
  1. WEGOVY [Suspect]
     Active Substance: SEMAGLUTIDE
     Indication: Weight decreased
     Route: 058
  2. WEGOVY [Suspect]
     Active Substance: SEMAGLUTIDE
     Indication: Spinal stenosis
  3. HYDROCODONE [Concomitant]
     Active Substance: HYDROCODONE
  4. MORPHINE [Concomitant]
     Active Substance: MORPHINE
  5. XANAX [Concomitant]
     Active Substance: ALPRAZOLAM
  6. ZOLOFT [Concomitant]
     Active Substance: SERTRALINE HYDROCHLORIDE

REACTIONS (6)
  - Blood iron decreased [None]
  - Haemoglobin decreased [None]
  - Transfusion [None]
  - Dyspnoea [None]
  - Palpitations [None]
  - Asthenia [None]

NARRATIVE: CASE EVENT DATE: 20251218
